FAERS Safety Report 19475491 (Version 1)
Quarter: 2021Q2

REPORT INFORMATION
  Report Type: Spontaneous
  Country: US (occurrence: US)
  Receive Date: 20210630
  Receipt Date: 20210630
  Transmission Date: 20210717
  Serious: Yes (Other)
  Sender: FDA-Public Use
  Company Number: US-COLGATE PALMOLIVE COMPANY-20210601438

PATIENT
  Sex: Female

DRUGS (1)
  1. COLGATE ULTRA PROTECT [Suspect]
     Active Substance: SODIUM FLUORIDE
     Dosage: UNKNOWN DOSE

REACTIONS (5)
  - Oral disorder [Unknown]
  - Tongue paralysis [Unknown]
  - Paralysis [Unknown]
  - Facial paralysis [Unknown]
  - Blood potassium decreased [Unknown]
